FAERS Safety Report 17855174 (Version 1)
Quarter: 2020Q2

REPORT INFORMATION
  Report Type: Spontaneous
  Country: US (occurrence: US)
  Receive Date: 20200602
  Receipt Date: 20200602
  Transmission Date: 20200714
  Serious: Yes (Hospitalization)
  Sender: FDA-Public Use
  Company Number: None

PATIENT
  Age: 56 Year
  Sex: Female
  Weight: 70.31 kg

DRUGS (1)
  1. BACLOFEN (BACLOFEN 10MG TAB) [Suspect]
     Active Substance: BACLOFEN
     Indication: PAIN
     Route: 048
     Dates: start: 20191210, end: 20191212

REACTIONS (5)
  - Mental status changes [None]
  - Somnolence [None]
  - Fall [None]
  - Flank pain [None]
  - Urinary retention [None]

NARRATIVE: CASE EVENT DATE: 20191212
